FAERS Safety Report 11189259 (Version 1)
Quarter: 2015Q2

REPORT INFORMATION
  Report Type: Spontaneous
  Country: GB (occurrence: None)
  Receive Date: 20150611
  Receipt Date: 20150611
  Transmission Date: 20150821
  Serious: No
  Sender: FDA-Public Use
  Company Number: GB-2015-2446

PATIENT
  Sex: Female

DRUGS (9)
  1. CYCLOPHOSPHAMIDE (CYCLOPHOSPHAMIDE) [Suspect]
     Active Substance: CYCLOPHOSPHAMIDE
     Indication: BREAST CANCER METASTATIC
  2. ADRIAMYCIN [Suspect]
     Active Substance: DOXORUBICIN HYDROCHLORIDE
     Indication: BREAST CANCER METASTATIC
  3. FLUOROURACIL (FLUOROURACIL SODIUM) [Suspect]
     Active Substance: FLUOROURACIL
     Indication: BREAST CANCER METASTATIC
  4. CAPECITABINE (CAPECITABINE, CAPECITABINE) [Suspect]
     Active Substance: CAPECITABINE
     Indication: BREAST CANCER METASTATIC
  5. PACLITAXEL (PACLITAXEL) [Suspect]
     Active Substance: PACLITAXEL
     Indication: BREAST CANCER METASTATIC
  6. METHOTREXATE (METHOTREXATE SODIUM) [Suspect]
     Active Substance: METHOTREXATE SODIUM
     Indication: BREAST CANCER METASTATIC
  7. VINORELBINE INN (VINORELBINE TARTRATE) SOLUTION FOR INJECTION [Suspect]
     Active Substance: VINORELBINE TARTRATE
     Indication: BREAST CANCER METASTATIC
  8. CARBOPLATIN (CARBOPLATIN) [Suspect]
     Active Substance: CARBOPLATIN
     Indication: BREAST CANCER METASTATIC
  9. ERIBULIN (ERIBULIN) [Suspect]
     Active Substance: ERIBULIN
     Indication: BREAST CANCER METASTATIC

REACTIONS (3)
  - Bone pain [None]
  - Malignant neoplasm progression [None]
  - Immobile [None]
